FAERS Safety Report 4376184-0 (Version None)
Quarter: 2004Q2

REPORT INFORMATION
  Report Type: 
  Country: None (occurrence: None)
  Receive Date: 20040607
  Receipt Date: 20040524
  Transmission Date: 20050107
  Serious: No
  Sender: FDA-Public Use
  Company Number: 2004GB01268

PATIENT
  Age: 33 Year
  Sex: Female

DRUGS (2)
  1. MARCAINE [Suspect]
     Dosage: 0.25%/10ML
     Dates: start: 20040429, end: 20040429
  2. PROSTIN E2 [Concomitant]

REACTIONS (4)
  - DISTURBANCE IN ATTENTION [None]
  - EXOPHTHALMOS [None]
  - FEELING JITTERY [None]
  - FOAMING AT MOUTH [None]
